FAERS Safety Report 10172360 (Version 9)
Quarter: 2015Q2

REPORT INFORMATION
  Report Type: Report from Study
  Country: GB (occurrence: GB)
  Receive Date: 20140515
  Receipt Date: 20150423
  Transmission Date: 20150821
  Serious: Yes (Other)
  Sender: FDA-Public Use
  Company Number: GB-JNJFOC-20140504569

PATIENT
  Sex: Male

DRUGS (4)
  1. L-THYROXINE [Concomitant]
     Active Substance: LEVOTHYROXINE
     Indication: HYPOTHYROIDISM
  2. ACYCLOVIR. [Concomitant]
     Active Substance: ACYCLOVIR
  3. COTRIMOXAZOLE [Concomitant]
     Active Substance: SULFAMETHOXAZOLE\TRIMETHOPRIM
  4. IBRUTINIB [Suspect]
     Active Substance: IBRUTINIB
     Indication: CHRONIC LYMPHOCYTIC LEUKAEMIA
     Route: 048
     Dates: start: 20140408

REACTIONS (6)
  - Rash erythematous [Recovered/Resolved]
  - Hypothyroidism [Recovering/Resolving]
  - Constipation [Not Recovered/Not Resolved]
  - Paraesthesia [Recovered/Resolved]
  - Acne [Recovered/Resolved]
  - Synovial cyst [Not Recovered/Not Resolved]
